FAERS Safety Report 14427068 (Version 1)
Quarter: 2018Q1

REPORT INFORMATION
  Report Type: Spontaneous
  Country: JP (occurrence: JP)
  Receive Date: 20180123
  Receipt Date: 20180123
  Transmission Date: 20180509
  Serious: Yes (Other)
  Sender: FDA-Public Use
  Company Number: JP-GILEAD-2018-0316299

PATIENT
  Age: 86 Year

DRUGS (1)
  1. HARVONI [Suspect]
     Active Substance: LEDIPASVIR\SOFOSBUVIR
     Indication: HEPATITIS
     Dosage: UNK
     Route: 048
     Dates: start: 2017

REACTIONS (12)
  - Injury [Unknown]
  - Pruritus [Unknown]
  - Pain in extremity [Unknown]
  - Haemorrhage [Unknown]
  - Internal haemorrhage [Unknown]
  - Eczema [Unknown]
  - Eye operation [Unknown]
  - Fall [Not Recovered/Not Resolved]
  - Arthralgia [Unknown]
  - Fatigue [Unknown]
  - Drug dose omission [Unknown]
  - Dizziness [Recovered/Resolved]

NARRATIVE: CASE EVENT DATE: 20171225
